FAERS Safety Report 5745007-7 (Version None)
Quarter: 2008Q2

REPORT INFORMATION
  Report Type: 
  Country: None (occurrence: None)
  Receive Date: 20080521
  Receipt Date: 20080514
  Transmission Date: 20081010
  Serious: Yes (Disabling, Other)
  Sender: FDA-Public Use
  Company Number: BR-ASTRAZENECA-2008UW07748

PATIENT
  Age: 30 Year
  Sex: Female
  Weight: 59 kg

DRUGS (6)
  1. ZOLADEX [Suspect]
     Indication: ENDOMETRIOSIS
     Route: 058
     Dates: start: 20071113, end: 20071113
  2. ZOLADEX [Suspect]
     Route: 058
     Dates: start: 20080207, end: 20080207
  3. DIGRETAT [Concomitant]
     Indication: REFLUX OESOPHAGITIS
     Route: 048
  4. DIGRETAT [Concomitant]
     Indication: OESOPHAGITIS
     Route: 048
  5. LANZOPRASOL [Concomitant]
     Indication: REFLUX OESOPHAGITIS
     Route: 048
  6. LANZOPRASOL [Concomitant]
     Indication: OESOPHAGITIS
     Route: 048

REACTIONS (14)
  - ALOPECIA [None]
  - ARTHRALGIA [None]
  - DIZZINESS [None]
  - DYSPHONIA [None]
  - HEADACHE [None]
  - HOT FLUSH [None]
  - HYPOTENSION [None]
  - INSOMNIA [None]
  - MALAISE [None]
  - PAIN IN EXTREMITY [None]
  - SECRETION DISCHARGE [None]
  - SKIN DISORDER [None]
  - SOMNOLENCE [None]
  - VAGINAL DISCHARGE [None]
